FAERS Safety Report 12683852 (Version 5)
Quarter: 2016Q4

REPORT INFORMATION
  Report Type: Spontaneous
  Country: US (occurrence: US)
  Receive Date: 20160825
  Receipt Date: 20161104
  Transmission Date: 20170207
  Serious: Yes (Hospitalization, Other)
  Sender: FDA-Public Use
  Company Number: US-PFIZER INC-2016391219

PATIENT
  Age: 82 Year
  Sex: Female
  Weight: 51.25 kg

DRUGS (2)
  1. PERCOCET [Suspect]
     Active Substance: ACETAMINOPHEN\OXYCODONE HYDROCHLORIDE
     Indication: PAIN
     Dosage: UNK
     Route: 065
  2. IBRANCE [Suspect]
     Active Substance: PALBOCICLIB
     Indication: METASTATIC MALIGNANT MELANOMA
     Dosage: 100 MG, CYCLIC (100 MG PO Q DAY 21 DAYS OUT OF 28 DAYS)
     Route: 048
     Dates: start: 20160608, end: 20160819

REACTIONS (6)
  - Loss of consciousness [Unknown]
  - Product use issue [Unknown]
  - Vomiting [Unknown]
  - Neoplasm progression [Not Recovered/Not Resolved]
  - Accidental overdose [Unknown]
  - Syncope [Not Recovered/Not Resolved]

NARRATIVE: CASE EVENT DATE: 20160819
